FAERS Safety Report 12587773 (Version 1)
Quarter: 2016Q3

REPORT INFORMATION
  Report Type: Spontaneous
  Country: BR (occurrence: BR)
  Receive Date: 20160725
  Receipt Date: 20160725
  Transmission Date: 20161109
  Serious: Yes (Other)
  Sender: FDA-Public Use
  Company Number: BR-PFIZER INC-2016352310

PATIENT
  Sex: Male

DRUGS (1)
  1. FRONTAL XR [Suspect]
     Active Substance: ALPRAZOLAM
     Dosage: UNK
     Dates: start: 2008

REACTIONS (3)
  - Drug dependence [Unknown]
  - Liver disorder [Not Recovered/Not Resolved]
  - Dry mouth [Not Recovered/Not Resolved]
